FAERS Safety Report 9974339 (Version 1)
Quarter: 2014Q1

REPORT INFORMATION
  Report Type: Report from Study
  Country: US (occurrence: US)
  Receive Date: 20140306
  Receipt Date: 20140306
  Transmission Date: 20141002
  Serious: No
  Sender: FDA-Public Use
  Company Number: US-ABBVIE-13P-163-1158831-00

PATIENT
  Age: 68 Year
  Sex: Female

DRUGS (15)
  1. HUMIRA [Suspect]
     Indication: PSORIASIS
     Dates: start: 201307
  2. INSULIN NOVALOG [Concomitant]
     Indication: PRODUCT USED FOR UNKNOWN INDICATION
     Dosage: 70/30
  3. CELEXA [Concomitant]
     Indication: PRODUCT USED FOR UNKNOWN INDICATION
  4. CORNEAL TRANSPLANT MEDICATION [Concomitant]
     Indication: PRODUCT USED FOR UNKNOWN INDICATION
  5. LISINOPRIL [Concomitant]
     Indication: PRODUCT USED FOR UNKNOWN INDICATION
  6. LOVASTATIN [Concomitant]
     Indication: PRODUCT USED FOR UNKNOWN INDICATION
  7. ACTONEL [Concomitant]
     Indication: PRODUCT USED FOR UNKNOWN INDICATION
  8. ASA [Concomitant]
     Indication: PRODUCT USED FOR UNKNOWN INDICATION
  9. CALCIUM CITRATE [Concomitant]
     Indication: PRODUCT USED FOR UNKNOWN INDICATION
  10. FISH OIL [Concomitant]
     Indication: PRODUCT USED FOR UNKNOWN INDICATION
  11. MULTIVITAMIN [Concomitant]
     Indication: PRODUCT USED FOR UNKNOWN INDICATION
  12. COQ10 [Concomitant]
     Indication: PRODUCT USED FOR UNKNOWN INDICATION
  13. EYE DROPS [Concomitant]
     Indication: PRODUCT USED FOR UNKNOWN INDICATION
  14. SHAMPOO FOR PSORIASIS [Concomitant]
     Indication: PSORIASIS
  15. OTHER TOPICALS FOR PSORIASIS [Concomitant]
     Indication: PSORIASIS

REACTIONS (5)
  - Fatigue [Not Recovered/Not Resolved]
  - Weight decreased [Not Recovered/Not Resolved]
  - Diarrhoea [Not Recovered/Not Resolved]
  - Pancreatitis chronic [Not Recovered/Not Resolved]
  - Liver disorder [Unknown]
